FAERS Safety Report 21166762 (Version 1)
Quarter: 2022Q3

REPORT INFORMATION
  Report Type: Spontaneous
  Country: US (occurrence: None)
  Receive Date: 20220802
  Receipt Date: 20220802
  Transmission Date: 20221027
  Serious: Yes (Life-Threatening)
  Sender: FDA-Public Use
  Company Number: None

PATIENT
  Age: 21 Year
  Sex: Female

DRUGS (1)
  1. CAPECITABINE [Suspect]
     Active Substance: CAPECITABINE
     Dosage: 1400MG BID ORAL?
     Route: 048
     Dates: start: 202207

REACTIONS (2)
  - Injection site thrombosis [None]
  - Nausea [None]

NARRATIVE: CASE EVENT DATE: 20220730
